FAERS Safety Report 6467327-3 (Version None)
Quarter: 2009Q4

REPORT INFORMATION
  Report Type: 
  Country: None (occurrence: None)
  Receive Date: 20091202
  Receipt Date: 20091124
  Transmission Date: 20100525
  Serious: Yes (Hospitalization)
  Sender: FDA-Public Use
  Company Number: US-ELI_LILLY_AND_COMPANY-US200911006542

PATIENT
  Sex: Female

DRUGS (6)
  1. HUMALOG MIX 75/25 [Suspect]
     Indication: DIABETES MELLITUS
     Dosage: UNK, EACH MORNING
     Dates: start: 20040101
  2. HUMALOG MIX 75/25 [Suspect]
     Dosage: UNK, EACH EVENING
     Dates: start: 20040101
  3. HUMALOG MIX 75/25 [Suspect]
     Dosage: UNK, EACH MORNING
     Dates: start: 20040101
  4. HUMALOG MIX 75/25 [Suspect]
     Dosage: UNK, EACH EVENING
     Dates: start: 20040101
  5. HUMALOG MIX 75/25 [Suspect]
     Dosage: UNK, EACH MORNING
     Dates: start: 20040101
  6. HUMALOG MIX 75/25 [Suspect]
     Dosage: UNK, EACH EVENING
     Dates: start: 20040101

REACTIONS (8)
  - BALANCE DISORDER [None]
  - FALL [None]
  - GAIT DISTURBANCE [None]
  - HIP FRACTURE [None]
  - MOBILITY DECREASED [None]
  - MUSCLE STRAIN [None]
  - TENDON INJURY [None]
  - UPPER LIMB FRACTURE [None]
